FAERS Safety Report 26090260 (Version 1)
Quarter: 2025Q4

REPORT INFORMATION
  Report Type: Spontaneous
  Country: EU (occurrence: EU)
  Receive Date: 20251126
  Receipt Date: 20251126
  Transmission Date: 20260118
  Serious: Yes (Other)
  Sender: ANI
  Company Number: None

PATIENT
  Age: 35 Year
  Sex: Female
  Weight: 90 kg

DRUGS (4)
  1. CANDESARTAN CILEXETIL [Suspect]
     Active Substance: CANDESARTAN CILEXETIL
     Indication: Renal hypertension
     Route: 048
     Dates: start: 202310, end: 202405
  2. ENOXAPARIN SODIUM [Concomitant]
     Active Substance: ENOXAPARIN SODIUM
     Indication: Product used for unknown indication
  3. CARIBAN [Concomitant]
     Indication: Product used for unknown indication
  4. CLOTRIMAZOLE [Concomitant]
     Active Substance: CLOTRIMAZOLE
     Indication: Product used for unknown indication

REACTIONS (3)
  - Contraindicated product administered [Unknown]
  - Oligohydramnios [Unknown]
  - Maternal exposure during pregnancy [Unknown]

NARRATIVE: CASE EVENT DATE: 20231001
